FAERS Safety Report 4316479-X (Version None)
Quarter: 2004Q1

REPORT INFORMATION
  Report Type: 
  Country: None (occurrence: None)
  Receive Date: 20040310
  Receipt Date: 20031205
  Transmission Date: 20041129
  Serious: No
  Sender: FDA-Public Use
  Company Number: FROV000153

PATIENT
  Age: 49 Year
  Sex: Female

DRUGS (6)
  1. FROVA [Suspect]
     Indication: MIGRAINE
     Dosage: 5 MG ORAL
     Route: 048
     Dates: start: 20031204
  2. NADOLOL [Concomitant]
  3. ZYRTEC [Concomitant]
  4. AVANDA (ROSIGLITAZONE MALEATE) [Concomitant]
  5. PROTONIX [Concomitant]
  6. AVANDIA [Concomitant]

REACTIONS (5)
  - DIZZINESS [None]
  - HYPERACUSIS [None]
  - MIGRAINE [None]
  - NAUSEA [None]
  - PHOTOPHOBIA [None]
